FAERS Safety Report 23868691 (Version 1)
Quarter: 2024Q2

REPORT INFORMATION
  Report Type: Spontaneous
  Country: US (occurrence: US)
  Receive Date: 20240517
  Receipt Date: 20240517
  Transmission Date: 20240715
  Serious: Yes (Hospitalization)
  Sender: FDA-Public Use
  Company Number: US-TEVA-VS-3192402

PATIENT
  Age: 53 Year
  Sex: Female
  Weight: 70 kg

DRUGS (2)
  1. CINQAIR [Suspect]
     Active Substance: RESLIZUMAB
     Indication: Asthma
     Dosage: 100MG/10ML
     Route: 042
     Dates: start: 20231016, end: 20240328
  2. DIPHENHYDRAMINE [Concomitant]
     Active Substance: DIPHENHYDRAMINE
     Route: 048

REACTIONS (2)
  - Throat irritation [Unknown]
  - Urticaria [Unknown]

NARRATIVE: CASE EVENT DATE: 20240330
